FAERS Safety Report 26126206 (Version 1)
Quarter: 2025Q4

REPORT INFORMATION
  Report Type: Spontaneous
  Country: EU (occurrence: EU)
  Receive Date: 20251205
  Receipt Date: 20251205
  Transmission Date: 20260118
  Serious: Yes (Life-Threatening, Hospitalization, Other)
  Sender: ALEXION PHARMACEUTICALS
  Company Number: None

PATIENT
  Age: 75 Year
  Sex: Female

DRUGS (3)
  1. IMFINZI [Suspect]
     Active Substance: DURVALUMAB
     Indication: Cholangiocarcinoma
     Dosage: 1500 MG EVERY 28 DAYS
     Dates: start: 20250814, end: 20251021
  2. GEMCITABINE [Suspect]
     Active Substance: GEMCITABINE
     Dosage: 1000 MG/M2 DAYS 1-8 EVERY 28 DAYS, REDUCED DOSE 25%
     Dates: start: 20250724
  3. CISPLATIN [Suspect]
     Active Substance: CISPLATIN
     Dosage: 25 MG/M2 DAYS 1-8 EVERY 28 DAYS, REDUCED DOSE 25%
     Dates: start: 20250724

REACTIONS (3)
  - Inappropriate antidiuretic hormone secretion [Recovered/Resolved with Sequelae]
  - Hyperpyrexia [Recovering/Resolving]
  - Vomiting [Recovering/Resolving]

NARRATIVE: CASE EVENT DATE: 20250929
